FAERS Safety Report 6258995-X (Version None)
Quarter: 2009Q3

REPORT INFORMATION
  Report Type: 
  Country: None (occurrence: None)
  Receive Date: 20090707
  Receipt Date: 20090626
  Transmission Date: 20100115
  Serious: Yes (Other)
  Sender: FDA-Public Use
  Company Number: PHHY2009JP26378

PATIENT
  Sex: Female

DRUGS (1)
  1. TEGRETOL [Suspect]
     Indication: HYPOAESTHESIA
     Dosage: 100 MG/DAY
     Route: 048

REACTIONS (2)
  - ARTICULAR CALCIFICATION [None]
  - MUSCULAR WEAKNESS [None]
